FAERS Safety Report 9143301 (Version 1)
Quarter: 2013Q1

REPORT INFORMATION
  Report Type: Spontaneous
  Country: US (occurrence: US)
  Receive Date: 20130306
  Receipt Date: 20130306
  Transmission Date: 20140127
  Serious: Yes (Other)
  Sender: FDA-Public Use
  Company Number: US-ASTELLAS-2013US002414

PATIENT
  Age: 25 Year
  Sex: Male

DRUGS (1)
  1. PROGRAF [Suspect]
     Indication: LIVER TRANSPLANT
     Dosage: 6 MG, UID/QD
     Route: 048
     Dates: start: 19970420

REACTIONS (2)
  - Liver transplant [Unknown]
  - Renal transplant [Unknown]
